FAERS Safety Report 6219345-8 (Version None)
Quarter: 2009Q2

REPORT INFORMATION
  Report Type: 
  Country: None (occurrence: None)
  Receive Date: 20090609
  Receipt Date: 20090605
  Transmission Date: 20091009
  Serious: Yes (Life-Threatening, Hospitalization, Other)
  Sender: FDA-Public Use
  Company Number: GB-ASTRAZENECA-2009SE02086

PATIENT
  Age: 48 Year
  Sex: Male

DRUGS (5)
  1. QUETIAPINE FUMARATE [Suspect]
     Dosage: 8400 MG
  2. BACLOFEN [Suspect]
     Dosage: TWO WEEKS SUPPLY OF BACLOFEN, 840 MG WERE MISSING
     Route: 065
  3. SALICYLIC ACID [Concomitant]
  4. GABAPENTIN [Concomitant]
  5. MIRTAZAPINE [Concomitant]

REACTIONS (20)
  - AREFLEXIA [None]
  - BLOOD AMYLASE INCREASED [None]
  - COMA [None]
  - DIABETES INSIPIDUS [None]
  - ELECTROCARDIOGRAM QT PROLONGED [None]
  - GLASGOW COMA SCALE ABNORMAL [None]
  - HYPERTENSION [None]
  - HYPOTENSION [None]
  - HYPOTHERMIA [None]
  - HYPOTONIA [None]
  - HYPOXIA [None]
  - INTENTIONAL OVERDOSE [None]
  - LOSS OF CONSCIOUSNESS [None]
  - MUSCLE TWITCHING [None]
  - MYDRIASIS [None]
  - PARANOIA [None]
  - POLYURIA [None]
  - PUPILLARY REFLEX IMPAIRED [None]
  - RESPIRATORY RATE DECREASED [None]
  - SINUS BRADYCARDIA [None]
